FAERS Safety Report 6334741-6 (Version None)
Quarter: 2009Q3

REPORT INFORMATION
  Report Type: 
  Country: None (occurrence: None)
  Receive Date: 20090831
  Receipt Date: 20090824
  Transmission Date: 20100115
  Serious: No
  Sender: FDA-Public Use
  Company Number: US-B.I. PHARMACEUTICALS,INC./RIDGEFIELD-2009-BP-10032BP

PATIENT
  Sex: Male

DRUGS (10)
  1. FLOMAX [Suspect]
     Indication: PROSTATITIS
     Dosage: 0.4 MG
     Route: 048
     Dates: start: 20090801
  2. WELCHOL [Concomitant]
     Indication: BLOOD CHOLESTEROL INCREASED
     Route: 048
  3. ZETIA [Concomitant]
     Indication: BLOOD CHOLESTEROL INCREASED
     Dosage: 10 MG
     Route: 048
  4. LYRICA [Concomitant]
     Indication: NEURALGIA
     Route: 048
  5. GABAPENTIN [Concomitant]
     Route: 048
  6. CLONAZEPAM [Concomitant]
     Dosage: 0.5 MG
     Route: 048
  7. AMBIEN CR [Concomitant]
     Indication: INSOMNIA
     Dosage: 12.5 MG
     Route: 048
  8. METHADONE [Concomitant]
     Indication: PAIN
     Route: 048
  9. ADVAIR HFA [Concomitant]
     Indication: ASTHMA
     Route: 055
  10. ASTELIN [Concomitant]
     Indication: HYPERSENSITIVITY
     Route: 055

REACTIONS (2)
  - EJACULATION FAILURE [None]
  - ERECTILE DYSFUNCTION [None]
